FAERS Safety Report 7717609-X (Version None)
Quarter: 2011Q3

REPORT INFORMATION
  Report Type: 
  Country: None (occurrence: None)
  Receive Date: 20110830
  Receipt Date: 20110825
  Transmission Date: 20111222
  Serious: Yes (Hospitalization)
  Sender: FDA-Public Use
  Company Number: FR-SANOFI-AVENTIS-2011SA054664

PATIENT
  Age: 69 Year
  Sex: Male
  Weight: 90 kg

DRUGS (15)
  1. ZOFRAN [Concomitant]
  2. POTASSIUM CHLORIDE [Concomitant]
  3. EMEND [Concomitant]
  4. ZOMETA [Concomitant]
  5. NEULASTA [Concomitant]
  6. OROCAL D(3) [Concomitant]
  7. PREDNISOLONE [Concomitant]
  8. ANDROCUR [Concomitant]
  9. QUININE AND DERIVATIVES [Concomitant]
  10. ESOMEPRAZOLE SODIUM [Concomitant]
  11. SOLU-MEDROL [Concomitant]
  12. POLARAMINE [Concomitant]
  13. JEVTANA KIT [Suspect]
     Indication: PROSTATE CANCER
     Route: 042
     Dates: start: 20110801, end: 20110801
  14. ACETAMINOPHEN [Concomitant]
  15. ZANTAC [Concomitant]

REACTIONS (1)
  - COLD TYPE HAEMOLYTIC ANAEMIA [None]
